FAERS Safety Report 9517827 (Version 2)
Quarter: 2013Q3

REPORT INFORMATION
  Report Type: Report from Study
  Country: MY (occurrence: MY)
  Receive Date: 20130912
  Receipt Date: 20130912
  Transmission Date: 20140515
  Serious: Yes (Other)
  Sender: FDA-Public Use
  Company Number: MY-BRISTOL-MYERS SQUIBB COMPANY-16180754

PATIENT
  Age: 31 Year
  Sex: Male

DRUGS (4)
  1. ARIPIPRAZOLE IM DEPOT [Suspect]
     Indication: SCHIZOPHRENIA
     Dosage: WITHDRN:2AUG11
     Dates: start: 20110706, end: 20110706
  2. ABILIFY TABS [Suspect]
     Indication: SCHIZOPHRENIA
     Dosage: 6MG:13-19APR(7DY),12MG:20-26APR(7DY),18MG:27APR-3MAY(7DY),24MG:4MAY-1AUG11(90DY),WITHDRN:2AUG11
     Route: 048
     Dates: start: 20110413, end: 201108
  3. BENZHEXOL [Concomitant]
     Dates: start: 20110706
  4. ZOLPIDEM [Concomitant]
     Dates: start: 20110702, end: 20110725

REACTIONS (1)
  - Schizophrenia [Recovered/Resolved]
